FAERS Safety Report 5366258-X (Version None)
Quarter: 2007Q2

REPORT INFORMATION
  Report Type: 
  Country: None (occurrence: None)
  Receive Date: 20070619
  Receipt Date: 20070619
  Transmission Date: 20071010
  Serious: Yes (Hospitalization)
  Sender: FDA-Public Use
  Company Number: None

PATIENT
  Age: 18 Year
  Sex: Female
  Weight: 55.7924 kg

DRUGS (1)
  1. SERTRALINE HYDROCHLORIDE [Suspect]
     Indication: DEPRESSION
     Dosage: 50 MG QAM PO
     Route: 048
     Dates: start: 20070222, end: 20070308

REACTIONS (2)
  - HALLUCINATION, AUDITORY [None]
  - REFUSAL OF TREATMENT BY PATIENT [None]
